FAERS Safety Report 9714336 (Version 3)
Quarter: 2014Q1

REPORT INFORMATION
  Report Type: Spontaneous
  Country: JP (occurrence: JP)
  Receive Date: 20131126
  Receipt Date: 20140310
  Transmission Date: 20141002
  Serious: Yes (Hospitalization)
  Sender: FDA-Public Use
  Company Number: JP-MALLINCKRODT-T201304911

PATIENT
  Age: 49 Year
  Sex: Male
  Weight: 79 kg

DRUGS (25)
  1. METHADONE [Suspect]
     Indication: CANCER PAIN
     Dosage: 10 MG, (30MG DAILY DOSE)
     Route: 048
     Dates: start: 20131016, end: 20131021
  2. METHADONE [Suspect]
     Dosage: 20 MG, (40MG DAILY DOSE)
     Route: 048
     Dates: start: 20131022, end: 20131027
  3. METHADONE [Suspect]
     Dosage: 25 MG, (50MG DAILY DOSE)
     Route: 048
     Dates: start: 20131028, end: 20131104
  4. METHADONE [Suspect]
     Dosage: 30 MG, (60MG DAILY DOSE)
     Route: 048
     Dates: start: 20131105, end: 20140101
  5. OXINORM [Concomitant]
     Dosage: 30 MG, PRN
     Route: 048
     Dates: start: 20131016
  6. LOXOPROFEN [Concomitant]
     Dosage: 180 MG, UNK
     Route: 048
     Dates: end: 20140101
  7. REBAMIPIDE [Concomitant]
     Dosage: 300 MG, UNK
     Route: 048
     Dates: end: 20140101
  8. MAGMITT [Concomitant]
     Dosage: 990 MG, UNK
     Route: 048
     Dates: end: 20140101
  9. CALONAL [Concomitant]
     Dosage: 3200 MG, UNK
     Route: 048
     Dates: end: 20131112
  10. LANSOPRAZOLE [Concomitant]
     Dosage: 15 MG, UNK
     Route: 048
     Dates: end: 20140101
  11. ALFAROL [Concomitant]
     Dosage: 0.5 ?G, UNK
     Route: 048
     Dates: end: 20140101
  12. AMLODIPINE [Concomitant]
     Dosage: 2.5 MG, UNK
     Route: 048
     Dates: end: 20140101
  13. SOLANAX [Concomitant]
     Dosage: 0.4 MG, UNK
     Route: 048
     Dates: end: 20140101
  14. NOVAMIN [Concomitant]
     Dosage: 15 MG, UNK
     Dates: start: 20131022, end: 20131113
  15. ACETATE RINGERS [Concomitant]
     Dosage: 500 ML, UNK
     Route: 051
     Dates: start: 20131023, end: 20131024
  16. PRIMPERAN [Concomitant]
     Dosage: 10 MG, UNK
     Route: 051
     Dates: start: 20131023, end: 20131024
  17. RINDERON [Concomitant]
     Dosage: 4 MG, UNK
     Route: 051
     Dates: start: 20131023, end: 20131024
  18. RINDERON [Concomitant]
     Dosage: 2 MG, UNK
     Route: 048
     Dates: start: 20131025, end: 20140101
  19. ASPARA [Concomitant]
     Dosage: 1200 MG, UNK
     Route: 048
     Dates: start: 20131023, end: 20140101
  20. MOHRUS [Concomitant]
     Dosage: 20 MG, UNK
     Route: 061
     Dates: start: 20131106, end: 20131110
  21. FLORID [Concomitant]
     Dosage: 5 G, UNK
     Route: 049
     Dates: start: 20131106, end: 20131110
  22. XYLOCAINE [Concomitant]
     Dosage: 15 ML, UNK
     Route: 051
     Dates: start: 20131106, end: 20131110
  23. HACHIAZULE [Concomitant]
     Dosage: 10 G, UNK
     Route: 051
     Dates: start: 20131106, end: 20131110
  24. AVASTIN [Concomitant]
     Dosage: UNK
     Dates: start: 20130925, end: 20131030
  25. FOLFOX [Concomitant]
     Dosage: UNK
     Dates: start: 20130821, end: 20131030

REACTIONS (5)
  - Vomiting [Recovered/Resolved]
  - Nausea [Recovered/Resolved]
  - Decreased appetite [Recovered/Resolved]
  - Hypocalcaemia [Recovering/Resolving]
  - Stomatitis [Recovered/Resolved]
